FAERS Safety Report 4629414-1 (Version None)
Quarter: 2005Q2

REPORT INFORMATION
  Report Type: 
  Country: None (occurrence: None)
  Receive Date: 20050405
  Receipt Date: 20050321
  Transmission Date: 20051028
  Serious: Yes (Hospitalization)
  Sender: FDA-Public Use
  Company Number: ACO_0135_2005

PATIENT
  Age: 43 Year
  Sex: Female
  Weight: 58.9676 kg

DRUGS (2)
  1. ZANAFLEX [Suspect]
     Indication: MUSCLE SPASMS
     Dates: start: 20050314, end: 20050318
  2. INHALER [Concomitant]

REACTIONS (4)
  - CONDITION AGGRAVATED [None]
  - DYSKINESIA [None]
  - MUSCLE SPASMS [None]
  - SPEECH DISORDER [None]
